FAERS Safety Report 6656813-9 (Version None)
Quarter: 2010Q1

REPORT INFORMATION
  Report Type: 
  Country: None (occurrence: None)
  Receive Date: 20100325
  Receipt Date: 20100317
  Transmission Date: 20100710
  Serious: Yes (Hospitalization)
  Sender: FDA-Public Use
  Company Number: SPV1-2010-00487

PATIENT
  Age: 6 Year
  Sex: Male
  Weight: 23.6 kg

DRUGS (2)
  1. INTUNIV [Suspect]
     Indication: ATTENTION DEFICIT/HYPERACTIVITY DISORDER
     Dosage: 3 MG, 1X/DAY:QD, ORAL
     Route: 048
     Dates: start: 20100310, end: 20100310
  2. FOCALIN [Concomitant]

REACTIONS (5)
  - BRADYCARDIA [None]
  - DIZZINESS [None]
  - HYPOTENSION [None]
  - INCORRECT DOSE ADMINISTERED [None]
  - UNRESPONSIVE TO STIMULI [None]
